APPROVED DRUG PRODUCT: LEVOFLOXACIN
Active Ingredient: LEVOFLOXACIN
Strength: 250MG/10ML
Dosage Form/Route: SOLUTION;ORAL
Application: A205222 | Product #001 | TE Code: AA
Applicant: LANNETT CO INC
Approved: May 25, 2018 | RLD: No | RS: No | Type: RX